FAERS Safety Report 8134727-5 (Version None)
Quarter: 2012Q1

REPORT INFORMATION
  Report Type: 
  Country: None (occurrence: None)
  Receive Date: 20120209
  Receipt Date: 20120130
  Transmission Date: 20120608
  Serious: Yes (Hospitalization)
  Sender: FDA-Public Use
  Company Number: DSJ-2011-25769

PATIENT
  Age: 67 Year
  Sex: Male

DRUGS (2)
  1. BETAMETHASONE [Concomitant]
  2. OFLOXACIN [Suspect]
     Indication: EXTERNAL EAR INFLAMMATION
     Dosage: 3-4 DROPSX2 TIMES (2 IN 1 D) AURICULAR (OTIC)
     Route: 001
     Dates: start: 20110917, end: 20110926

REACTIONS (6)
  - RASH GENERALISED [None]
  - PYREXIA [None]
  - RENAL FAILURE [None]
  - CARDIAC FAILURE [None]
  - STEVENS-JOHNSON SYNDROME [None]
  - DRUG ERUPTION [None]
